FAERS Safety Report 6333210-7 (Version None)
Quarter: 2009Q3

REPORT INFORMATION
  Report Type: 
  Country: None (occurrence: None)
  Receive Date: 20090828
  Receipt Date: 20090826
  Transmission Date: 20100115
  Serious: Yes (Life-Threatening, Hospitalization)
  Sender: FDA-Public Use
  Company Number: AU-BRISTOL-MYERS SQUIBB COMPANY-14755128

PATIENT
  Age: 71 Year
  Sex: Female

DRUGS (5)
  1. AMIKACIN SULFATE [Suspect]
     Indication: MYCOBACTERIAL INFECTION
     Dates: start: 20070813, end: 20071001
  2. CEFOXITIN SODIUM [Suspect]
     Indication: MYCOBACTERIAL INFECTION
     Dates: start: 20070813, end: 20071031
  3. CLARITHROMYCIN [Suspect]
     Indication: MYCOBACTERIAL INFECTION
     Dates: start: 20070813, end: 20071031
  4. TEMAZE [Concomitant]
     Indication: SLEEP DISORDER
  5. ZANTAC [Concomitant]
     Indication: MYCOBACTERIAL INFECTION
     Dates: end: 20071031

REACTIONS (2)
  - RENAL FAILURE ACUTE [None]
  - TUBULOINTERSTITIAL NEPHRITIS [None]
